FAERS Safety Report 6101464-8 (Version None)
Quarter: 2009Q1

REPORT INFORMATION
  Report Type: 
  Country: None (occurrence: None)
  Receive Date: 20090227
  Receipt Date: 20090216
  Transmission Date: 20090719
  Serious: Yes (Hospitalization)
  Sender: FDA-Public Use
  Company Number: 2009020035

PATIENT
  Age: 58 Year
  Sex: Female
  Weight: 65.7716 kg

DRUGS (2)
  1. ASTELIN [Suspect]
     Indication: POSTNASAL DRIP
     Dosage: 1096 MCG (548 MCG, 2 IN 1 D) ,IN
     Dates: start: 20090127, end: 20090212
  2. VIVELLE-DOT [Concomitant]

REACTIONS (4)
  - ANXIETY [None]
  - CARDIAC INFECTION [None]
  - DYSPNOEA [None]
  - VIRAL INFECTION [None]
